FAERS Safety Report 8000617-1 (Version None)
Quarter: 2011Q4

REPORT INFORMATION
  Report Type: 
  Country: None (occurrence: None)
  Receive Date: 20111216
  Receipt Date: 20111205
  Transmission Date: 20120403
  Serious: Yes (Death)
  Sender: FDA-Public Use
  Company Number: 2011296789

PATIENT
  Sex: Female

DRUGS (1)
  1. FRAGMIN [Suspect]
     Dosage: 5000 IU, SUBCUTANEOUS
     Route: 058

REACTIONS (2)
  - LOCAL SWELLING [None]
  - HAEMATOMA [None]
